FAERS Safety Report 26054623 (Version 1)
Quarter: 2025Q4

REPORT INFORMATION
  Report Type: Spontaneous
  Country: US (occurrence: US)
  Receive Date: 20251117
  Receipt Date: 20251117
  Transmission Date: 20260118
  Serious: Yes (Other)
  Sender: AMGEN
  Company Number: US-AMGEN-USASP2025224284

PATIENT
  Age: 35 Year
  Sex: Female

DRUGS (2)
  1. TEPROTUMUMAB [Suspect]
     Active Substance: TEPROTUMUMAB
     Indication: Endocrine ophthalmopathy
     Dosage: UNK, (EIGHT CYCLES)
     Route: 040
  2. PREDNISONE [Suspect]
     Active Substance: PREDNISONE
     Indication: Endocrine ophthalmopathy
     Dosage: 1 MILLIGRAM/KILOGRAM, QD, (TAPER)
     Route: 065

REACTIONS (4)
  - Endocrine ophthalmopathy [Unknown]
  - Off label use [Unknown]
  - Alopecia [Unknown]
  - Therapeutic product effect incomplete [Unknown]
